FAERS Safety Report 18494504 (Version 1)
Quarter: 2020Q4

REPORT INFORMATION
  Report Type: Report from Study
  Country: IT (occurrence: IT)
  Receive Date: 20201112
  Receipt Date: 20201112
  Transmission Date: 20210114
  Serious: Yes (Hospitalization)
  Sender: FDA-Public Use
  Company Number: IT-TEVA-2020-IT-1847375

PATIENT
  Age: 61 Year
  Sex: Female

DRUGS (5)
  1. SIMVASTATINA EG 40 MG COMPRESSE RIVESTITE CON FILM [Concomitant]
     Route: 048
  2. LORAZEPAM. [Suspect]
     Active Substance: LORAZEPAM
     Route: 048
     Dates: start: 20200526, end: 20200526
  3. FEVARIN [Suspect]
     Active Substance: FLUVOXAMINE MALEATE
     Route: 048
     Dates: start: 20200526, end: 20200526
  4. OLANZAPINE TEVA 10 MG FILM-COATED TABLETS [Suspect]
     Active Substance: OLANZAPINE
     Dosage: UNIT DOSE : 9 DOSAGE FORMS
     Route: 048
     Dates: start: 20200526, end: 20200526
  5. CARDIRENE 75 MG [Concomitant]
     Active Substance: ASPIRIN DL-LYSINE
     Route: 048

REACTIONS (3)
  - Intentional overdose [Recovered/Resolved]
  - Intentional self-injury [Recovered/Resolved]
  - Toxicity to various agents [Recovered/Resolved]

NARRATIVE: CASE EVENT DATE: 20200526
